FAERS Safety Report 4736239-5 (Version None)
Quarter: 2005Q3

REPORT INFORMATION
  Report Type: 
  Country: None (occurrence: None)
  Receive Date: 20050804
  Receipt Date: 20050804
  Transmission Date: 20060218
  Serious: Yes (Death)
  Sender: FDA-Public Use
  Company Number: None

PATIENT
  Sex: Male

DRUGS (1)
  1. FACTIVE [Suspect]

REACTIONS (29)
  - ABDOMINAL DISTENSION [None]
  - ABDOMINAL PAIN [None]
  - ABDOMINAL TENDERNESS [None]
  - ABSCESS [None]
  - ASTERIXIS [None]
  - BODY TEMPERATURE DECREASED [None]
  - CARDIAC MURMUR [None]
  - CHOLELITHIASIS [None]
  - DERMATITIS [None]
  - DRUG TOXICITY [None]
  - DYSPNOEA [None]
  - HAEMODIALYSIS [None]
  - HAEMODYNAMIC INSTABILITY [None]
  - HEPATIC FAILURE [None]
  - HYPERKALAEMIA [None]
  - INFECTION [None]
  - JAUNDICE [None]
  - LACERATION [None]
  - LETHARGY [None]
  - OCULAR ICTERUS [None]
  - OEDEMA PERIPHERAL [None]
  - PITTING OEDEMA [None]
  - RALES [None]
  - RENAL FAILURE ACUTE [None]
  - RESPIRATORY RATE INCREASED [None]
  - SIGMOIDOSCOPY ABNORMAL [None]
  - TACHYCARDIA [None]
  - THERAPY NON-RESPONDER [None]
  - TONGUE DISCOLOURATION [None]
